FAERS Safety Report 4744888-3 (Version None)
Quarter: 2005Q3

REPORT INFORMATION
  Report Type: 
  Country: None (occurrence: None)
  Receive Date: 20050815
  Receipt Date: 20040913
  Transmission Date: 20060218
  Serious: Yes (Death, Hospitalization, Other)
  Sender: FDA-Public Use
  Company Number: US-MERCK-0409USA01708

PATIENT
  Age: 21 Year
  Sex: Female

DRUGS (6)
  1. FLEXERIL [Suspect]
     Route: 048
  2. ULTRACET [Suspect]
     Route: 065
  3. ELAVIL [Suspect]
     Route: 048
  4. TIZANIDINE HYDROCHLORIDE [Suspect]
     Route: 048
  5. VIOXX [Suspect]
     Route: 048
  6. OMEPRAZOLE [Suspect]
     Route: 048

REACTIONS (14)
  - AGGRESSION [None]
  - ASPIRATION [None]
  - BREATH SOUNDS ABNORMAL [None]
  - COMPLETED SUICIDE [None]
  - DEPRESSED LEVEL OF CONSCIOUSNESS [None]
  - DRUG INTERACTION [None]
  - DRUG SCREEN POSITIVE [None]
  - DRUG TOXICITY [None]
  - INTENTIONAL MISUSE [None]
  - LUNG CREPITATION [None]
  - LUNG DISORDER [None]
  - SEDATION [None]
  - SELF-MEDICATION [None]
  - VOMITING [None]
